FAERS Safety Report 6974594-6 (Version None)
Quarter: 2010Q3

REPORT INFORMATION
  Report Type: 
  Country: None (occurrence: None)
  Receive Date: 20100909
  Receipt Date: 20100909
  Transmission Date: 20110219
  Serious: Yes (Life-Threatening)
  Sender: FDA-Public Use
  Company Number: None

PATIENT
  Age: 34 Year
  Sex: Female
  Weight: 60.782 kg

DRUGS (2)
  1. ZOLPIDEM [Suspect]
     Indication: ANXIETY
     Dosage: 10MG QHS PO
     Route: 048
     Dates: start: 20100429, end: 20100430
  2. ZOLPIDEM [Suspect]
     Indication: INSOMNIA
     Dosage: 10MG QHS PO
     Route: 048
     Dates: start: 20100429, end: 20100430

REACTIONS (4)
  - AMNESIA [None]
  - IMPRISONMENT [None]
  - ROAD TRAFFIC ACCIDENT [None]
  - SOMNAMBULISM [None]
